FAERS Safety Report 8835492 (Version 2)
Quarter: 2012Q4

REPORT INFORMATION
  Report Type: 
  Country: SE (occurrence: SE)
  Receive Date: 20121011
  Receipt Date: 20121210
  Transmission Date: 20130627
  Serious: Yes (Other)
  Sender: FDA-Public Use
  Company Number: PHHY2012SE089252

PATIENT
  Age: 57 Year
  Sex: Female

DRUGS (10)
  1. CLOZAPINE [Suspect]
     Indication: SCHIZOPHRENIA
     Route: 048
  2. LEPONEX [Suspect]
     Indication: SCHIZOPHRENIA
     Route: 048
  3. CLOZAPINE ACTAVIS [Suspect]
     Indication: SCHIZOPHRENIA
     Dosage: 500 mg
     Route: 048
  4. IKTORIVIL [Concomitant]
  5. METYLSKOPOLAMIN [Concomitant]
     Dosage: 1 DF, daily
  6. ESIDREX [Concomitant]
     Dosage: 1 DF, daily
  7. ENALAPRIL SANDOZ [Concomitant]
  8. SPIRIVA [Concomitant]
  9. SYMBICORT [Concomitant]
  10. ACETYLCYSTEIN [Concomitant]

REACTIONS (7)
  - Chronic obstructive pulmonary disease [Unknown]
  - Dyspnoea [Unknown]
  - Delusion [Unknown]
  - Heart rate increased [Unknown]
  - Hypertension [Unknown]
  - Anxiety [Unknown]
  - Fatigue [Unknown]
